FAERS Safety Report 13299838 (Version 1)
Quarter: 2017Q1

REPORT INFORMATION
  Report Type: Spontaneous
  Country: TH (occurrence: TH)
  Receive Date: 20170306
  Receipt Date: 20170306
  Transmission Date: 20170428
  Serious: Yes (Hospitalization)
  Sender: FDA-Public Use
  Company Number: TH-NORTHSTAR HEALTHCARE HOLDINGS-TH-2017NSR000115

PATIENT
  Age: 15 Year
  Sex: Female

DRUGS (5)
  1. PROPRANOLOL HYDROCHLORIDE. [Suspect]
     Active Substance: PROPRANOLOL HYDROCHLORIDE
     Indication: HYPERTHYROIDISM
     Dosage: 20 MG, EVERY 8 HOURS
  2. METHIMAZOLE. [Suspect]
     Active Substance: METHIMAZOLE
     Dosage: 20 MG, EVERY 6 HOURS
  3. METHIMAZOLE. [Suspect]
     Active Substance: METHIMAZOLE
     Dosage: 20 MG, QD (20 MG/DAY)
  4. METHIMAZOLE. [Suspect]
     Active Substance: METHIMAZOLE
     Indication: HYPERTHYROIDISM
     Dosage: 10 MG, QD (10 MG/DAY)
  5. METHIMAZOLE. [Suspect]
     Active Substance: METHIMAZOLE
     Dosage: 5 MG/DAY TO 80 MG/DAY (DAY 0 TO 40 AT HOSPITALIZATION)

REACTIONS (11)
  - Pallor [Unknown]
  - Peripheral coldness [Unknown]
  - Pulmonary arterial hypertension [Recovering/Resolving]
  - Cardiogenic shock [Recovering/Resolving]
  - Lethargy [Unknown]
  - Multiple organ dysfunction syndrome [Unknown]
  - Thyrotoxic crisis [Unknown]
  - Nausea [Unknown]
  - Hypotension [Recovering/Resolving]
  - Generalised tonic-clonic seizure [Recovering/Resolving]
  - Cardiac output decreased [Recovering/Resolving]
